FAERS Safety Report 5329453-1 (Version None)
Quarter: 2007Q2

REPORT INFORMATION
  Report Type: 
  Country: None (occurrence: None)
  Receive Date: 20070221
  Receipt Date: 20061002
  Transmission Date: 20071010
  Serious: Yes (Other)
  Sender: FDA-Public Use
  Company Number: US-2006-007215

PATIENT
  Age: 56 Year
  Sex: Female
  Weight: 62.6 kg

DRUGS (7)
  1. CLIMARA [Suspect]
     Indication: MENOPAUSE
     Dosage: 0.05 MG/D, CONT, TRANSDERMAL
     Route: 062
     Dates: start: 19990101, end: 20000101
  2. PREMARIN [Suspect]
     Indication: MENOPAUSE
     Dosage: 0.625 MG
     Dates: start: 19940701, end: 19980301
  3. PROVERA [Suspect]
     Indication: MENOPAUSE
     Dosage: 10 MG
     Dates: start: 19940701, end: 19970101
  4. ESTRACE [Suspect]
     Indication: MENOPAUSE
     Dosage: 1 MG
     Dates: start: 19980401, end: 19981201
  5. VIVELLE [Suspect]
     Indication: MENOPAUSE
     Dosage: 0.5 MG
     Dates: start: 20000601, end: 20020201
  6. PROMETRIUM [Suspect]
     Indication: MENOPAUSE
     Dosage: 100 MG
     Dates: start: 19991101, end: 20010401
  7. MEDROXYPROGESTERONE [Suspect]

REACTIONS (1)
  - BREAST CANCER IN SITU [None]
